FAERS Safety Report 5127110-8 (Version None)
Quarter: 2006Q4

REPORT INFORMATION
  Report Type: 
  Country: None (occurrence: None)
  Receive Date: 20061013
  Receipt Date: 20061003
  Transmission Date: 20070319
  Serious: Yes (Hospitalization)
  Sender: FDA-Public Use
  Company Number: FR-SANOFI-SYNTHELABO-A02200602594

PATIENT
  Sex: Female

DRUGS (7)
  1. ANAFRANIL [Suspect]
     Indication: BIPOLAR DISORDER
     Route: 048
     Dates: start: 20060424
  2. LARGACTIL [Suspect]
     Indication: BIPOLAR DISORDER
     Route: 048
     Dates: start: 20051201
  3. ZOLPIDEM TARTRATE [Suspect]
     Indication: BIPOLAR DISORDER
     Route: 048
     Dates: start: 20051201
  4. SEROPRAM [Concomitant]
     Indication: BIPOLAR DISORDER
     Dosage: UNK
     Route: 048
     Dates: start: 20051201, end: 20060401
  5. DEPAKOTE [Suspect]
     Indication: BIPOLAR DISORDER
     Route: 048
     Dates: start: 20060503
  6. XANAX [Suspect]
     Indication: BIPOLAR DISORDER
     Route: 048
     Dates: start: 20051201
  7. NOCTRAN [Concomitant]
     Indication: INTENTIONAL OVERDOSE
     Route: 048
     Dates: start: 20060401, end: 20060401

REACTIONS (6)
  - CAESAREAN SECTION [None]
  - DRUG EXPOSURE DURING PREGNANCY [None]
  - DRUG WITHDRAWAL SYNDROME [None]
  - INTENTIONAL OVERDOSE [None]
  - PLACENTA PRAEVIA [None]
  - PLACENTA PRAEVIA HAEMORRHAGE [None]
